FAERS Safety Report 8607914 (Version 5)
Quarter: 2013Q1

REPORT INFORMATION
  Report Type: Report from Study
  Country: US (occurrence: US)
  Receive Date: 20120611
  Receipt Date: 20130206
  Transmission Date: 20140127
  Serious: Yes (Hospitalization)
  Sender: FDA-Public Use
  Company Number: US-UCBSA-058584

PATIENT
  Age: 61 Year
  Sex: Female
  Weight: 174.2 kg

DRUGS (15)
  1. CERTOLIZUMAB PEGOL [Suspect]
     Dosage: NO. OF DOSES RECEIVED: 14
     Route: 058
     Dates: start: 20111122, end: 20120522
  2. CERTOLIZUMAB PEGOL [Suspect]
     Dosage: NO. OF DOSES RECEIVED: 3
     Route: 058
     Dates: start: 20111011, end: 20111110
  3. METHOTREXATE [Concomitant]
     Indication: RHEUMATOID ARTHRITIS
     Route: 048
     Dates: start: 20110127
  4. PREDNISONE [Concomitant]
     Indication: RHEUMATOID ARTHRITIS
     Route: 048
     Dates: start: 20110524
  5. FOLIC ACID [Concomitant]
     Indication: VITAMIN SUPPLEMENTATION
     Route: 048
     Dates: start: 20110127
  6. VITAMIN D3 [Concomitant]
     Indication: VITAMIN SUPPLEMENTATION
     Route: 048
     Dates: start: 20101223
  7. HYDROCODONE/APAP [Concomitant]
     Indication: RHEUMATOID ARTHRITIS
     Dosage: 2.5/500
     Route: 048
     Dates: start: 20101124
  8. CLONIDINE [Concomitant]
     Indication: HYPERTENSION
     Route: 048
     Dates: start: 201011
  9. HYDROCHLOROTHIAZIDE [Concomitant]
     Indication: HYPERTENSION
     Route: 048
     Dates: start: 201011, end: 20120526
  10. DILTIAZEM [Concomitant]
     Indication: HYPERTENSION
     Route: 048
     Dates: start: 201011, end: 20120526
  11. CARVEDILOL [Concomitant]
     Indication: HYPERTENSION
     Route: 048
     Dates: start: 201011, end: 20120526
  12. GABAPENTIN [Concomitant]
     Indication: NEURALGIA
     Route: 048
     Dates: start: 20101026, end: 20120526
  13. VITAMIN B 12 [Concomitant]
     Indication: VITAMIN SUPPLEMENTATION
     Route: 048
     Dates: start: 201011, end: 20120526
  14. CALCIUM+VITAMIN D [Concomitant]
     Indication: VITAMIN SUPPLEMENTATION
     Dosage: 1 TABLET DAILY
     Route: 048
     Dates: start: 201005, end: 20120526
  15. CENTRUM SILVER [Concomitant]
     Indication: SUPPLEMENTATION THERAPY
     Dosage: 1 TABLET
     Route: 048
     Dates: start: 201011, end: 20120526

REACTIONS (1)
  - Staphylococcal sepsis [Recovered/Resolved]
